FAERS Safety Report 8888782 (Version 1)
Quarter: 2012Q4

REPORT INFORMATION
  Report Type: 
  Country: US (occurrence: US)
  Receive Date: 20121106
  Receipt Date: 20121106
  Transmission Date: 20130627
  Serious: No
  Sender: FDA-Public Use
  Company Number: US-B.I. PHARMACEUTICALS,INC./RIDGEFIELD-2012-BP-27138BP

PATIENT
  Age: 76 None
  Sex: Female
  Weight: 71.6 kg

DRUGS (11)
  1. PRADAXA [Suspect]
     Indication: ATRIAL FIBRILLATION
  2. XARELTO [Suspect]
     Indication: ATRIAL FIBRILLATION
     Dosage: 20 mg
     Route: 048
     Dates: start: 20120306
  3. PREVACID (LANSOPRAZOLE) [Concomitant]
     Indication: GASTROOESOPHAGEAL REFLUX DISEASE
     Dosage: 130 mg
     Route: 048
  4. PREVACID (LANSOPRAZOLE) [Concomitant]
     Indication: ABDOMINAL DISCOMFORT
  5. DIOVAN (VALSARTAN) [Concomitant]
     Indication: HYPERTENSION
     Dosage: 80 mg
     Route: 048
  6. PAXIL (PAROXETINE HYDROCHLORIDE) [Concomitant]
     Indication: ANXIETY
     Route: 048
  7. PAXIL (PAROXETINE HYDROCHLORIDE) [Concomitant]
     Indication: ANXIETY
  8. METOPROLOL (METOPROLOL) [Concomitant]
     Indication: ATRIAL FIBRILLATION
     Dosage: 200 mg
     Route: 048
     Dates: start: 201111
  9. XANAX (ALPRAZOLAM) [Concomitant]
     Indication: NERVOUSNESS
     Dosage: 50 mg
     Route: 048
  10. FLOVENT (FLUTICASONE PROPIONATE) [Concomitant]
     Indication: ASTHMA
  11. CLARITIN (LORATADINE) [Concomitant]
     Indication: MULTIPLE ALLERGIES

REACTIONS (21)
  - Red blood cell count increased [Unknown]
  - Urinary tract infection [Not Recovered/Not Resolved]
  - Tremor [Not Recovered/Not Resolved]
  - Arthritis [Not Recovered/Not Resolved]
  - Weight increased [Not Recovered/Not Resolved]
  - Syncope [Not Recovered/Not Resolved]
  - Dizziness [Not Recovered/Not Resolved]
  - Asthenia [Not Recovered/Not Resolved]
  - Nausea [Not Recovered/Not Resolved]
  - Epistaxis [Recovered/Resolved]
  - Skin odour abnormal [Not Recovered/Not Resolved]
  - Urine odour abnormal [Not Recovered/Not Resolved]
  - Dyspnoea [Not Recovered/Not Resolved]
  - Fatigue [Not Recovered/Not Resolved]
  - Headache [Not Recovered/Not Resolved]
  - Paraesthesia [Not Recovered/Not Resolved]
  - Muscle spasms [Not Recovered/Not Resolved]
  - Confusional state [Not Recovered/Not Resolved]
  - Memory impairment [Not Recovered/Not Resolved]
  - Musculoskeletal pain [Not Recovered/Not Resolved]
  - Nervousness [Unknown]
